FAERS Safety Report 20637722 (Version 1)
Quarter: 2022Q1

REPORT INFORMATION
  Report Type: Spontaneous
  Country: US (occurrence: US)
  Receive Date: 20220325
  Receipt Date: 20220325
  Transmission Date: 20220423
  Serious: No
  Sender: FDA-Public Use
  Company Number: US-BAUSCH-BL-2022-007086

PATIENT
  Age: 70 Year
  Sex: Female
  Weight: 86.260 kg

DRUGS (1)
  1. POLYMYXIN B SULFATE AND TRIMETHOPRIM [Suspect]
     Active Substance: POLYMYXIN B SULFATE\TRIMETHOPRIM SULFATE
     Indication: Hordeolum
     Route: 047
     Dates: start: 20220314

REACTIONS (2)
  - Instillation site irritation [Recovering/Resolving]
  - Instillation site pruritus [Recovering/Resolving]

NARRATIVE: CASE EVENT DATE: 20220301
